FAERS Safety Report 7968973-8 (Version None)
Quarter: 2011Q4

REPORT INFORMATION
  Report Type: 
  Country: None (occurrence: None)
  Receive Date: 20111209
  Receipt Date: 20111202
  Transmission Date: 20120403
  Serious: Yes (Other)
  Sender: FDA-Public Use
  Company Number: AU-B.I. PHARMACEUTICALS,INC./RIDGEFIELD-2011-AU-01207AU

PATIENT
  Sex: Male
  Weight: 76.6 kg

DRUGS (4)
  1. PANAMAX [Concomitant]
     Dosage: 1-2 TABS QID PRN
     Route: 048
  2. PRADAXA [Suspect]
     Indication: ATRIAL FIBRILLATION
     Dosage: 220 MG
     Dates: start: 20110712, end: 20110726
  3. SIMVASTATIN [Concomitant]
     Dosage: 40 MG
     Route: 048
  4. METOPROLOL TARTRATE [Concomitant]
     Dosage: 50 MG
     Route: 048

REACTIONS (2)
  - NEOPLASM MALIGNANT [None]
  - LOWER GASTROINTESTINAL HAEMORRHAGE [None]
